FAERS Safety Report 24399722 (Version 1)
Quarter: 2024Q4

REPORT INFORMATION
  Report Type: Report from Study
  Country: US (occurrence: US)
  Receive Date: 20241005
  Receipt Date: 20241005
  Transmission Date: 20250115
  Serious: Yes (Hospitalization)
  Sender: ACCORD
  Company Number: US-Accord-448638

PATIENT
  Sex: Male

DRUGS (1)
  1. CLOZAPINE [Suspect]
     Active Substance: CLOZAPINE
     Indication: Schizophrenia
     Dosage: 25MG, EVERY MORNING AT 8 AM AND 100MG, EVERY EVENING AT 5 PM
     Route: 048

REACTIONS (5)
  - Psychiatric decompensation [Unknown]
  - Condition aggravated [Unknown]
  - Catatonia [Unknown]
  - Schizophrenia [Unknown]
  - Mental disorder [Unknown]
